FAERS Safety Report 7948238-0 (Version None)
Quarter: 2011Q4

REPORT INFORMATION
  Report Type: 
  Country: None (occurrence: None)
  Receive Date: 20111130
  Receipt Date: 20111123
  Transmission Date: 20120403
  Serious: Yes (Hospitalization)
  Sender: FDA-Public Use
  Company Number: US-AMGEN-USASP2011037493

PATIENT
  Age: 39 Year
  Sex: Male

DRUGS (5)
  1. NPLATE [Suspect]
     Indication: IDIOPATHIC THROMBOCYTOPENIC PURPURA
     Dosage: UNK
     Dates: start: 20090625
  2. ZOFRAN [Concomitant]
  3. AMITRIPTYLINE HCL [Concomitant]
  4. DILAUDID [Concomitant]
  5. VERAPAMIL [Concomitant]

REACTIONS (4)
  - HEMIPARESIS [None]
  - MIGRAINE [None]
  - HEADACHE [None]
  - HOSPITALISATION [None]
